FAERS Safety Report 4358013-4 (Version None)
Quarter: 2004Q2

REPORT INFORMATION
  Report Type: 
  Country: None (occurrence: None)
  Receive Date: 20040510
  Receipt Date: 20040429
  Transmission Date: 20050107
  Serious: Yes (Other)
  Sender: FDA-Public Use
  Company Number: US-JNJFOC-20040400692

PATIENT
  Age: 47 Year
  Sex: Male
  Weight: 72.1219 kg

DRUGS (9)
  1. TOPAMAX [Suspect]
     Indication: CONVULSION
     Dosage: 200 MG, 2 IN 1 DAY, ORAL
     Route: 048
     Dates: start: 20031001, end: 20040401
  2. KEPPRA [Suspect]
     Indication: CONVULSION
     Dosage: 1500 MG, 2 IN 1 DAY
     Dates: start: 20030911
  3. TEMODAR [Suspect]
     Indication: BRAIN NEOPLASM
     Dosage: 200 MG/M2; SEE IMAGE
     Dates: start: 20040316, end: 20040320
  4. TEMODAR [Suspect]
     Indication: BRAIN NEOPLASM
     Dosage: 200 MG/M2; SEE IMAGE
     Dates: start: 20040216
  5. PREVICIDE (LANSOPRAZOLE) [Concomitant]
  6. IBUPROFEN [Concomitant]
  7. DOCUSATE (DOCUSATE) [Concomitant]
  8. ZOFRAN [Concomitant]
  9. LORAZEPAM [Concomitant]

REACTIONS (5)
  - BONE MARROW DEPRESSION [None]
  - HAEMOGLOBIN DECREASED [None]
  - NEUTROPENIA [None]
  - PLATELET COUNT DECREASED [None]
  - WHITE BLOOD CELL COUNT DECREASED [None]
